FAERS Safety Report 6052696-9 (Version None)
Quarter: 2009Q1

REPORT INFORMATION
  Report Type: 
  Country: None (occurrence: None)
  Receive Date: 20090121
  Receipt Date: 20090105
  Transmission Date: 20090719
  Serious: Yes (Death)
  Sender: FDA-Public Use
  Company Number: 2009000007

PATIENT
  Sex: Female

DRUGS (2)
  1. ERLOTINIB (ERLOTINIB) (TABLET) (ERLOTINIB) [Suspect]
     Indication: NON-SMALL CELL LUNG CANCER
     Dosage: (150 MG) ,ORAL
     Route: 048
  2. SORAFENIB/ PLACEBO [Suspect]
     Indication: NON-SMALL CELL LUNG CANCER

REACTIONS (6)
  - ASTHENIA [None]
  - DYSPNOEA [None]
  - HEPATIC NEOPLASM MALIGNANT [None]
  - JAUNDICE [None]
  - OEDEMA PERIPHERAL [None]
  - PRODUCTIVE COUGH [None]
